FAERS Safety Report 15941443 (Version 2)
Quarter: 2019Q1

REPORT INFORMATION
  Report Type: Spontaneous
  Country: US (occurrence: US)
  Receive Date: 20190208
  Receipt Date: 20190219
  Transmission Date: 20190417
  Serious: Yes (Other)
  Sender: FDA-Public Use
  Company Number: US-ASTRAZENECA-2019SE09694

PATIENT

DRUGS (26)
  1. LAMOTRIGINE. [Concomitant]
     Active Substance: LAMOTRIGINE
  2. TRAZODONE [Concomitant]
     Active Substance: TRAZODONE HYDROCHLORIDE
  3. BENZONATATE. [Concomitant]
     Active Substance: BENZONATATE
  4. CLONAZEPAM. [Concomitant]
     Active Substance: CLONAZEPAM
  5. LISINOPRIL. [Concomitant]
     Active Substance: LISINOPRIL
  6. CRESTOR [Concomitant]
     Active Substance: ROSUVASTATIN CALCIUM
  7. AMLODIPINE BESYLATE. [Concomitant]
     Active Substance: AMLODIPINE BESYLATE
  8. TEMAZEPAM. [Concomitant]
     Active Substance: TEMAZEPAM
  9. CEPHALEXIN. [Concomitant]
     Active Substance: CEPHALEXIN
  10. DIAZEPAM. [Concomitant]
     Active Substance: DIAZEPAM
  11. NEXIUM [Suspect]
     Active Substance: ESOMEPRAZOLE MAGNESIUM
     Dosage: 40.0MG UNKNOWN
     Route: 048
     Dates: start: 20130522
  12. CLONAZEPAM. [Concomitant]
     Active Substance: CLONAZEPAM
  13. ARIPIPRAZOLE. [Concomitant]
     Active Substance: ARIPIPRAZOLE
  14. HYDROCODON-ACETAMINOPHEN [Concomitant]
     Active Substance: ACETAMINOPHEN\HYDROCODONE
  15. METOPROLOL. [Concomitant]
     Active Substance: METOPROLOL
  16. ZOLPIDEM [Concomitant]
     Active Substance: ZOLPIDEM\ZOLPIDEM TARTRATE
  17. METFORMIN [Concomitant]
     Active Substance: METFORMIN HYDROCHLORIDE
  18. NITROFURANTOIN. [Concomitant]
     Active Substance: NITROFURANTOIN
  19. AFLURIA NOS [Concomitant]
     Active Substance: INFLUENZA VIRUS VACCINE TRIVALENT TYPE A+B AFLURIA
  20. OXYCODONE [Concomitant]
     Active Substance: OXYCODONE
  21. ALPRAZOLAM. [Concomitant]
     Active Substance: ALPRAZOLAM
  22. GLIPIZIDE. [Concomitant]
     Active Substance: GLIPIZIDE
  23. SODIUM BICARBONATE. [Concomitant]
     Active Substance: SODIUM BICARBONATE
  24. IBUPROFEN. [Concomitant]
     Active Substance: IBUPROFEN
  25. JANUVIA [Concomitant]
     Active Substance: SITAGLIPTIN PHOSPHATE
  26. ABILIFY [Concomitant]
     Active Substance: ARIPIPRAZOLE

REACTIONS (6)
  - Rebound acid hypersecretion [Unknown]
  - Tubulointerstitial nephritis [Unknown]
  - Renal impairment [Unknown]
  - Chronic kidney disease [Unknown]
  - Renal failure [Unknown]
  - Renal injury [Unknown]
